FAERS Safety Report 7451445-7 (Version None)
Quarter: 2011Q2

REPORT INFORMATION
  Report Type: 
  Country: None (occurrence: None)
  Receive Date: 20110502
  Receipt Date: 20110422
  Transmission Date: 20111010
  Serious: Yes (Hospitalization)
  Sender: FDA-Public Use
  Company Number: A0905624A

PATIENT
  Age: 62 Year
  Sex: Female

DRUGS (7)
  1. SARAFEM [Concomitant]
  2. NEXIUM [Concomitant]
  3. PREMARIN [Concomitant]
  4. ATENOLOL [Concomitant]
  5. MAXZIDE [Concomitant]
  6. NEURONTIN [Concomitant]
  7. AVANDIA [Suspect]
     Dosage: 8MG PER DAY
     Route: 048
     Dates: start: 20020301, end: 20040302

REACTIONS (4)
  - ARTERIOSCLEROSIS [None]
  - CARDIAC FAILURE CONGESTIVE [None]
  - PULMONARY OEDEMA [None]
  - CEREBROVASCULAR ACCIDENT [None]
